FAERS Safety Report 11216926 (Version 1)
Quarter: 2015Q2

REPORT INFORMATION
  Report Type: Spontaneous
  Country: US (occurrence: None)
  Receive Date: 20150623
  Receipt Date: 20150623
  Transmission Date: 20150821
  Serious: Yes (Disabling)
  Sender: FDA-Public Use
  Company Number: None

PATIENT
  Age: 55 Year
  Sex: Female
  Weight: 61.24 kg

DRUGS (1)
  1. CIPRO [Suspect]
     Active Substance: CIPROFLOXACIN HYDROCHLORIDE
     Indication: URINARY TRACT INFECTION
     Dosage: 20...  10 DAY SUPPLY  TWICE DAILY TAKEN BY MOUTH
     Route: 048
     Dates: start: 20100226

REACTIONS (9)
  - Panic attack [None]
  - Alopecia [None]
  - Deafness [None]
  - Neuropathy peripheral [None]
  - Dizziness [None]
  - Asthenia [None]
  - Muscle spasms [None]
  - Fatigue [None]
  - Tinnitus [None]
